FAERS Safety Report 4807503-6 (Version None)
Quarter: 2005Q4

REPORT INFORMATION
  Report Type: 
  Country: None (occurrence: None)
  Receive Date: 20051024
  Receipt Date: 20051017
  Transmission Date: 20060501
  Serious: Yes (Other)
  Sender: FDA-Public Use
  Company Number: 200518075US

PATIENT
  Age: 61 Year
  Sex: Female

DRUGS (2)
  1. TAXOTERE [Suspect]
     Indication: BREAST CANCER METASTATIC
     Dosage: DOSE: UNK
  2. RADIATION [Concomitant]
     Dosage: DOSE: UNK

REACTIONS (2)
  - LYMPH NODE FIBROSIS [None]
  - OEDEMA PERIPHERAL [None]
